FAERS Safety Report 18881907 (Version 1)
Quarter: 2021Q1

REPORT INFORMATION
  Report Type: Spontaneous
  Country: SE (occurrence: SE)
  Receive Date: 20210211
  Receipt Date: 20210211
  Transmission Date: 20210420
  Serious: Yes (Other)
  Sender: FDA-Public Use
  Company Number: SE-GILEAD-2021-0516893

PATIENT
  Age: 84 Year
  Sex: Male

DRUGS (10)
  1. ALVEDON [Concomitant]
     Active Substance: ACETAMINOPHEN
  2. HALDOL [Concomitant]
     Active Substance: HALOPERIDOL
  3. FURIX [FUROSEMIDE] [Concomitant]
     Active Substance: FUROSEMIDE
  4. FINASTERID [Concomitant]
     Active Substance: FINASTERIDE
  5. LEVAXIN [Concomitant]
     Active Substance: LEVOTHYROXINE SODIUM
  6. VEKLURY [Suspect]
     Active Substance: REMDESIVIR
     Indication: COVID-19
     Dosage: 1 DOSAGE FORM, QD, 2021?01?07 ?40 ML2; 021?01?08 ? 20 ML; 2021?01?09 ? 20 ML
     Route: 042
     Dates: start: 20210107, end: 20210109
  7. INNOHEP [Concomitant]
     Active Substance: TINZAPARIN SODIUM
  8. TRAJENTA [Concomitant]
     Active Substance: LINAGLIPTIN
  9. CALOGEN [FATS NOS] [Concomitant]
  10. RINGER?ACETAT [Concomitant]

REACTIONS (1)
  - Chronic kidney disease [Unknown]

NARRATIVE: CASE EVENT DATE: 20210109
